FAERS Safety Report 17414966 (Version 1)
Quarter: 2020Q1

REPORT INFORMATION
  Report Type: Spontaneous
  Country: FR (occurrence: FR)
  Receive Date: 20200213
  Receipt Date: 20200213
  Transmission Date: 20200409
  Serious: Yes (Hospitalization, Disabling, Other)
  Sender: FDA-Public Use
  Company Number: FR-BIOGEN-2020BI00836064

PATIENT
  Sex: Female
  Weight: 48 kg

DRUGS (15)
  1. DIPHTHERIA AND TETANUS TOXOIDS AND POLIOMYELITIS VACCINE NOS [Suspect]
     Active Substance: DIPHTHERIA AND TETANUS TOXOIDS AND POLIOVIRUS VACCINE ANTIGENS
     Indication: PROPHYLAXIS
     Route: 065
     Dates: start: 19970619
  2. RUDI ROUVAX [Suspect]
     Active Substance: MEASLES VIRUS ANTIGEN\RUBELLA VIRUS STRAIN WISTAR RA 27/3 LIVE ANTIGEN
     Indication: PROPHYLAXIS
     Route: 065
     Dates: start: 19880403, end: 19880403
  3. ENGERIX-B [Suspect]
     Active Substance: HEPATITIS B VIRUS SUBTYPE ADW2 HBSAG SURFACE PROTEIN ANTIGEN
     Indication: PROPHYLAXIS
     Route: 030
     Dates: start: 19960430
  4. TYSABRI [Suspect]
     Active Substance: NATALIZUMAB
     Indication: MULTIPLE SCLEROSIS
     Dosage: UNK
     Route: 065
     Dates: end: 20120307
  5. TETRACOQ [Suspect]
     Active Substance: DIPHTHERIA AND TETANUS TOXOIDS AND ACELLULAR PERTUSSIS ADSORBED AND INACTIVATED POLIOVIRUS VACCINE
     Indication: PROPHYLAXIS
     Route: 065
     Dates: start: 19860417, end: 19860417
  6. ENGERIX-B [Suspect]
     Active Substance: HEPATITIS B VIRUS SUBTYPE ADW2 HBSAG SURFACE PROTEIN ANTIGEN
     Route: 030
     Dates: start: 19961105
  7. TETRACOQ [Suspect]
     Active Substance: DIPHTHERIA AND TETANUS TOXOIDS AND ACELLULAR PERTUSSIS ADSORBED AND INACTIVATED POLIOVIRUS VACCINE
     Route: 065
     Dates: start: 19860515
  8. TETRACOQ [Suspect]
     Active Substance: DIPHTHERIA AND TETANUS TOXOIDS AND ACELLULAR PERTUSSIS ADSORBED AND INACTIVATED POLIOVIRUS VACCINE
     Route: 065
     Dates: start: 19860619
  9. TETRACOQ [Suspect]
     Active Substance: DIPHTHERIA AND TETANUS TOXOIDS AND ACELLULAR PERTUSSIS ADSORBED AND INACTIVATED POLIOVIRUS VACCINE
     Route: 065
  10. ROACCUTANE [Concomitant]
     Active Substance: ISOTRETINOIN
     Indication: ACNE
     Route: 065
  11. MEASLES MUMPS RUBELLA VACCINE [Suspect]
     Active Substance: MEASLES-MUMPS-RUBELLA VIRUS VACCINE
     Indication: PROPHYLAXIS
     Dosage: UNK
     Route: 065
     Dates: start: 19981016
  12. SMECTA [Concomitant]
     Active Substance: MONTMORILLONITE
     Indication: PRODUCT USED FOR UNKNOWN INDICATION
     Route: 065
  13. DT-IPV VACCINE [Concomitant]
     Indication: PROPHYLAXIS
     Route: 065
     Dates: start: 19920205, end: 19920205
  14. INFANRIX [Suspect]
     Active Substance: DIPHTHERIA AND TETANUS TOXOIDS AND ACELLULAR PERTUSSIS VACCINE ADSORBED PF
     Indication: PROPHYLAXIS
     Route: 030
     Dates: start: 20060309, end: 20060309
  15. ENGERIX-B [Suspect]
     Active Substance: HEPATITIS B VIRUS SUBTYPE ADW2 HBSAG SURFACE PROTEIN ANTIGEN
     Route: 030
     Dates: start: 19960531

REACTIONS (56)
  - Muscular weakness [Unknown]
  - Localised oedema [Unknown]
  - Formication [Unknown]
  - Paralysis [Unknown]
  - Mood altered [Unknown]
  - Multiple sclerosis [Unknown]
  - Hypersomnia [Unknown]
  - Hemiplegia [Unknown]
  - Eye pain [Unknown]
  - General physical health deterioration [Unknown]
  - Nervous system disorder [Unknown]
  - Vomiting [Unknown]
  - Fatigue [Unknown]
  - Face oedema [Unknown]
  - Coordination abnormal [Unknown]
  - Haematochezia [Unknown]
  - Urinary incontinence [Unknown]
  - Facial paralysis [Unknown]
  - Amnesia [Unknown]
  - Hyperaesthesia [Unknown]
  - Abdominal pain [Unknown]
  - Chest pain [Unknown]
  - Sensory loss [Unknown]
  - Palpitations [Unknown]
  - Headache [Unknown]
  - Sensory disturbance [Unknown]
  - Deafness [Unknown]
  - White matter lesion [Not Recovered/Not Resolved]
  - Nausea [Not Recovered/Not Resolved]
  - Gait disturbance [Recovered/Resolved]
  - Haematemesis [Unknown]
  - Haematuria [Unknown]
  - Sensorimotor disorder [Not Recovered/Not Resolved]
  - Depression [Unknown]
  - Loss of consciousness [Unknown]
  - Balance disorder [Unknown]
  - Movement disorder [Unknown]
  - Tremor [Unknown]
  - Flushing [Unknown]
  - Asthenia [Unknown]
  - Angioedema [Unknown]
  - Food poisoning [Unknown]
  - Hypoaesthesia [Unknown]
  - Hemiparesis [Unknown]
  - Diarrhoea [Unknown]
  - Ageusia [Unknown]
  - Malaise [Unknown]
  - Pruritus [Unknown]
  - Dizziness [Unknown]
  - Discomfort [Unknown]
  - Decreased appetite [Unknown]
  - Speech disorder [Recovered/Resolved]
  - Neck pain [Unknown]
  - Vertigo [Recovered/Resolved]
  - Paraesthesia [Unknown]
  - Dyspnoea [Unknown]

NARRATIVE: CASE EVENT DATE: 200303
